FAERS Safety Report 5758289-2 (Version None)
Quarter: 2008Q2

REPORT INFORMATION
  Report Type: 
  Country: None (occurrence: None)
  Receive Date: 20080604
  Receipt Date: 20080530
  Transmission Date: 20081010
  Serious: Yes (Hospitalization)
  Sender: FDA-Public Use
  Company Number: FR-ELI_LILLY_AND_COMPANY-FR200805006068

PATIENT
  Sex: Female

DRUGS (5)
  1. ZYPREXA [Suspect]
     Indication: ABNORMAL BEHAVIOUR
     Dosage: 15 MG, DAILY (1/D)
     Route: 048
     Dates: start: 20030101, end: 20080227
  2. IXEL [Concomitant]
     Indication: DEPRESSION
     Dosage: 50 MG, DAILY (1/D)
     Route: 048
     Dates: start: 20040101
  3. LEXOMIL [Concomitant]
     Indication: ANXIETY
     Dosage: 6 MG, 4/D
     Route: 048
     Dates: start: 20030801
  4. PARKINANE [Concomitant]
     Indication: PARKINSONISM
     Dosage: 5 MG, DAILY (1/D)
     Route: 048
     Dates: start: 20030101, end: 20080228
  5. DEPAMIDE [Concomitant]
     Indication: AFFECTIVE DISORDER
     Dosage: 1800 MG, DAILY (1/D)
     Route: 048
     Dates: start: 20030101

REACTIONS (2)
  - ABNORMAL BEHAVIOUR [None]
  - HYPOTHERMIA [None]
